FAERS Safety Report 7121531-X (Version None)
Quarter: 2010Q4

REPORT INFORMATION
  Report Type: 
  Country: None (occurrence: None)
  Receive Date: 20101124
  Receipt Date: 20101119
  Transmission Date: 20110411
  Serious: Yes (Hospitalization)
  Sender: FDA-Public Use
  Company Number: IT-BRACCO-000990

PATIENT
  Sex: Male

DRUGS (1)
  1. MULTIHANCE [Suspect]
     Indication: NUCLEAR MAGNETIC RESONANCE IMAGING
     Dosage: 15 POSOLOGIC UNITS
     Dates: start: 20101103, end: 20101103

REACTIONS (3)
  - ERYTHEMA [None]
  - PRESYNCOPE [None]
  - VOMITING [None]
